FAERS Safety Report 10094445 (Version 1)
Quarter: 2014Q2

REPORT INFORMATION
  Report Type: Spontaneous
  Country: US (occurrence: None)
  Receive Date: 20140421
  Receipt Date: 20140421
  Transmission Date: 20141212
  Serious: Yes (Disabling)
  Sender: FDA-Public Use
  Company Number: None

PATIENT
  Age: 47 Year
  Sex: Male
  Weight: 55.34 kg

DRUGS (6)
  1. DILANTIN [Suspect]
     Indication: EPILEPSY
     Dosage: 50MG?30?1 A DAY?BY MOUTH (CHEWABLE FOR
     Route: 048
     Dates: start: 20130926, end: 20140408
  2. DILANTIN [Suspect]
     Indication: CONVULSION
     Dosage: 50MG?30?1 A DAY?BY MOUTH (CHEWABLE FOR
     Route: 048
     Dates: start: 20130926, end: 20140408
  3. DEPAKOTE [Concomitant]
  4. DILANTIN [Concomitant]
  5. LAMICTAL [Concomitant]
  6. CLONAZEPAM [Concomitant]

REACTIONS (2)
  - Pruritus [None]
  - Weight decreased [None]
